FAERS Safety Report 25856162 (Version 2)
Quarter: 2025Q4

REPORT INFORMATION
  Report Type: Spontaneous
  Country: US (occurrence: US)
  Receive Date: 20250928
  Receipt Date: 20251001
  Transmission Date: 20260118
  Serious: No
  Sender: SANOFI AVENTIS
  Company Number: US-SANOFI-02662829

PATIENT
  Age: 69 Year
  Sex: Female

DRUGS (1)
  1. LANTUS SOLOSTAR [Suspect]
     Active Substance: INSULIN GLARGINE
     Indication: Type 2 diabetes mellitus
     Dosage: 60 IU, BID (60 UNITS IN THE MORNING AND 60 UNITS BEFORE BEDTIME))
     Route: 058
     Dates: start: 202506

REACTIONS (10)
  - Injection site pain [Unknown]
  - Wrong technique in device usage process [Unknown]
  - Mass [Unknown]
  - Generalised oedema [Unknown]
  - Weight increased [Unknown]
  - Pruritus [Unknown]
  - Urticaria [Unknown]
  - Drug hypersensitivity [Unknown]
  - Off label use [Unknown]
  - Product storage error [Unknown]

NARRATIVE: CASE EVENT DATE: 20250101
